FAERS Safety Report 11329786 (Version 6)
Quarter: 2015Q3

REPORT INFORMATION
  Report Type: Report from Study
  Country: DE (occurrence: DE)
  Receive Date: 20150803
  Receipt Date: 20150814
  Transmission Date: 20151125
  Serious: Yes (Hospitalization)
  Sender: FDA-Public Use
  Company Number: PHHO2015DE011077

PATIENT
  Age: 25 Year
  Sex: Male
  Weight: 65 kg

DRUGS (67)
  1. CERTICAN [Suspect]
     Active Substance: EVEROLIMUS
     Dosage: 8 MG, QD
     Route: 048
     Dates: start: 20150511, end: 20150511
  2. CERTICAN [Suspect]
     Active Substance: EVEROLIMUS
     Dosage: 4 MG, QD
     Route: 048
     Dates: start: 20150512, end: 20150512
  3. TACROLIMUS. [Suspect]
     Active Substance: TACROLIMUS
     Dosage: 12 MG, QD (5-0-7)
     Route: 048
     Dates: start: 20150516, end: 20150516
  4. TACROLIMUS. [Suspect]
     Active Substance: TACROLIMUS
     Dosage: 14 MG, QD (7-0-7)
     Route: 048
     Dates: start: 20150517, end: 20150520
  5. PREDNISOLONE. [Suspect]
     Active Substance: PREDNISOLONE
     Dosage: 20 MG, QD
     Route: 065
     Dates: start: 20150505, end: 20150507
  6. URBASON SOLUBILE FORTE [Concomitant]
     Indication: RENAL TRANSPLANT
     Dosage: 500 MG, QD
     Route: 065
     Dates: start: 20150422, end: 20150422
  7. CANDESARTAN [Concomitant]
     Active Substance: CANDESARTAN
     Indication: HYPERTENSION
     Dosage: UNK
     Route: 065
     Dates: start: 20150423
  8. MADOPAR [Concomitant]
     Active Substance: BENSERAZIDE HYDROCHLORIDE\LEVODOPA
     Indication: RESTLESS LEGS SYNDROME
     Dosage: UNK
     Route: 065
     Dates: start: 20150428
  9. ERYTHROPOETIN [Concomitant]
     Active Substance: ERYTHROPOIETIN
     Indication: NEPHROGENIC ANAEMIA
     Dosage: UNK
     Route: 065
     Dates: start: 20150501
  10. MAGNESIUM [Concomitant]
     Active Substance: MAGNESIUM
     Indication: PRODUCT USED FOR UNKNOWN INDICATION
     Dosage: UNK
     Route: 065
     Dates: start: 20150620
  11. CERTICAN [Suspect]
     Active Substance: EVEROLIMUS
     Dosage: 5 MG, QD (2-0-3)
     Route: 048
     Dates: start: 20150425, end: 20150425
  12. CERTICAN [Suspect]
     Active Substance: EVEROLIMUS
     Dosage: 5.5 MG, QD (3-0-2.5)
     Route: 048
     Dates: start: 20150605, end: 20150605
  13. TACROLIMUS. [Suspect]
     Active Substance: TACROLIMUS
     Dosage: 15 MG, QD (7-0-8)
     Route: 048
     Dates: start: 20150428, end: 20150428
  14. TACROLIMUS. [Suspect]
     Active Substance: TACROLIMUS
     Dosage: 18 MG, QD (10-0-8)
     Route: 048
     Dates: start: 20150503, end: 20150503
  15. TACROLIMUS. [Suspect]
     Active Substance: TACROLIMUS
     Dosage: 16 MG, QD (8-0-8)
     Route: 048
     Dates: start: 20150504, end: 20150505
  16. TACROLIMUS. [Suspect]
     Active Substance: TACROLIMUS
     Dosage: 14 MG, QD (7-0-7)
     Route: 048
     Dates: start: 20150507, end: 20150510
  17. TACROLIMUS. [Suspect]
     Active Substance: TACROLIMUS
     Dosage: 8 MG, QD (3-0-5)
     Route: 048
     Dates: start: 20150515, end: 20150515
  18. TACROLIMUS. [Suspect]
     Active Substance: TACROLIMUS
     Dosage: 5.5 MG, QD (2.5-0-3)
     Route: 048
     Dates: start: 20150616, end: 20150621
  19. TACROLIMUS. [Suspect]
     Active Substance: TACROLIMUS
     Dosage: 5 MG, QD (2.5-0-2.5)
     Route: 048
     Dates: start: 20150622, end: 20150622
  20. AMLODIPIN [Concomitant]
     Active Substance: AMLODIPINE BESYLATE
     Indication: HYPERTENSION
     Route: 065
     Dates: start: 20120928
  21. CERTICAN [Suspect]
     Active Substance: EVEROLIMUS
     Dosage: 8 MG, QD (4-0-4)
     Route: 048
     Dates: start: 20150515, end: 20150531
  22. TACROLIMUS. [Suspect]
     Active Substance: TACROLIMUS
     Dosage: 9 MG, QD (4-0-5)
     Route: 048
     Dates: start: 20150427, end: 20150427
  23. TACROLIMUS. [Suspect]
     Active Substance: TACROLIMUS
     Dosage: 7 MG, QD (4-0-3)
     Route: 048
     Dates: start: 20150514, end: 20150514
  24. TACROLIMUS. [Suspect]
     Active Substance: TACROLIMUS
     Dosage: 9 MG, QD (4.5-0-4.5)
     Route: 048
     Dates: start: 20150530, end: 20150531
  25. TACROLIMUS. [Suspect]
     Active Substance: TACROLIMUS
     Dosage: 6.5 MG, QD (3.5-0-3)
     Route: 048
     Dates: start: 20150605, end: 20150605
  26. TACROLIMUS. [Suspect]
     Active Substance: TACROLIMUS
     Dosage: 4.5 MG, QD (2-0-2.5)
     Route: 048
     Dates: start: 20150623
  27. BISOPROLOL [Concomitant]
     Active Substance: BISOPROLOL
     Indication: HYPERTENSION
     Dosage: UNK
     Route: 065
     Dates: start: 20120928
  28. CERTICAN [Suspect]
     Active Substance: EVEROLIMUS
     Dosage: 16 MG, QD (8-0-8)
     Route: 048
     Dates: start: 20150510, end: 20150510
  29. TACROLIMUS. [Suspect]
     Active Substance: TACROLIMUS
     Indication: RENAL TRANSPLANT
     Dosage: 4 MG, QD (2-0-2)
     Route: 048
     Dates: start: 20150423, end: 20150423
  30. TACROLIMUS. [Suspect]
     Active Substance: TACROLIMUS
     Dosage: 8 MG, QD (4-0-4)
     Route: 048
     Dates: start: 20150425, end: 20150426
  31. TACROLIMUS. [Suspect]
     Active Substance: TACROLIMUS
     Dosage: 7 MG, QD (3.5-0-3.5)
     Route: 048
     Dates: start: 20150602, end: 20150604
  32. PREDNISOLONE. [Suspect]
     Active Substance: PREDNISOLONE
     Dosage: 30 MG, QD
     Route: 065
     Dates: start: 20150502, end: 20150504
  33. URBASON SOLUBILE FORTE [Concomitant]
     Dosage: 250 MG, QD
     Route: 065
     Dates: start: 20150423, end: 20150423
  34. GABAPENTIN. [Concomitant]
     Active Substance: GABAPENTIN
     Indication: HYPOAESTHESIA
     Dosage: UNK
     Route: 065
     Dates: start: 20140505
  35. CERTICAN [Suspect]
     Active Substance: EVEROLIMUS
     Dosage: 16 MG, QD (8-0-8)
     Route: 048
     Dates: start: 20150502, end: 20150503
  36. CERTICAN [Suspect]
     Active Substance: EVEROLIMUS
     Dosage: 18 MG, QD (9-0-9)
     Route: 048
     Dates: start: 20150504, end: 20150509
  37. TACROLIMUS. [Suspect]
     Active Substance: TACROLIMUS
     Dosage: 15 MG, QD (8-0-7)
     Route: 048
     Dates: start: 20150506, end: 20150506
  38. TACROLIMUS. [Suspect]
     Active Substance: TACROLIMUS
     Dosage: 8 MG, QD (4-0-4)
     Route: 048
     Dates: start: 20150512, end: 20150513
  39. TACROLIMUS. [Suspect]
     Active Substance: TACROLIMUS
     Dosage: 8 MG, QD (4.5-0-3.5)
     Route: 048
     Dates: start: 20150601, end: 20150601
  40. TACROLIMUS. [Suspect]
     Active Substance: TACROLIMUS
     Dosage: 6 MG, QD (3-0-3)
     Route: 048
     Dates: start: 20150606, end: 20150615
  41. PANTOZOL [Concomitant]
     Active Substance: PANTOPRAZOLE SODIUM
     Indication: PROPHYLAXIS
     Dosage: UNK
     Route: 065
     Dates: start: 20150423
  42. COTRIM D.S. [Concomitant]
     Active Substance: SULFAMETHOXAZOLE\TRIMETHOPRIM
     Indication: ANTIFUNGAL PROPHYLAXIS
     Dosage: UNK
     Route: 065
     Dates: start: 20150423
  43. BICANORM [Concomitant]
     Active Substance: SODIUM BICARBONATE
     Indication: PRODUCT USED FOR UNKNOWN INDICATION
     Dosage: UNK
     Route: 065
     Dates: start: 20150605
  44. CERTICAN [Suspect]
     Active Substance: EVEROLIMUS
     Indication: RENAL TRANSPLANT
     Dosage: 3 MG, QD (1.5-0-1.5)
     Route: 048
     Dates: start: 20150423, end: 20150423
  45. CERTICAN [Suspect]
     Active Substance: EVEROLIMUS
     Dosage: 3.5 MG, QD (1.5-0-2)
     Route: 048
     Dates: start: 20150424, end: 20150424
  46. TACROLIMUS. [Suspect]
     Active Substance: TACROLIMUS
     Dosage: 6 MG, QD (2-0-4)
     Route: 048
     Dates: start: 20150424, end: 20150424
  47. TACROLIMUS. [Suspect]
     Active Substance: TACROLIMUS
     Dosage: 7 MG, QD (7-0-0)
     Route: 048
     Dates: start: 20150511, end: 20150511
  48. TACROLIMUS. [Suspect]
     Active Substance: TACROLIMUS
     Dosage: 9.5 MG, QD (5-0-4.5)
     Route: 048
     Dates: start: 20150529, end: 20150529
  49. CERTICAN [Suspect]
     Active Substance: EVEROLIMUS
     Dosage: 8 MG, QD (3-0-5)
     Route: 048
     Dates: start: 20150426, end: 20150426
  50. CERTICAN [Suspect]
     Active Substance: EVEROLIMUS
     Dosage: 11 MG, QD (5-0-6))
     Route: 048
     Dates: start: 20150427, end: 20150427
  51. CERTICAN [Suspect]
     Active Substance: EVEROLIMUS
     Dosage: 7 MG, QD (4-0-3)
     Route: 048
     Dates: start: 20150601, end: 20150601
  52. CERTICAN [Suspect]
     Active Substance: EVEROLIMUS
     Dosage: 6 MG, QD (3-0-3)
     Route: 048
     Dates: start: 20150602, end: 20150604
  53. CERTICAN [Suspect]
     Active Substance: EVEROLIMUS
     Dosage: 5 MG, QD (2.5-0-2.5)
     Route: 048
     Dates: start: 20150606, end: 20150612
  54. CERTICAN [Suspect]
     Active Substance: EVEROLIMUS
     Dosage: 4 MG, QD (2-0-2)
     Route: 048
     Dates: start: 20150613, end: 20150625
  55. TACROLIMUS. [Suspect]
     Active Substance: TACROLIMUS
     Dosage: 22 MG, QD (12-0-10)
     Route: 048
     Dates: start: 20150502, end: 20150502
  56. PREDNISOLONE. [Suspect]
     Active Substance: PREDNISOLONE
     Indication: RENAL TRANSPLANT
     Dosage: 50 MG, QD (IN MORNING)
     Route: 065
     Dates: start: 20150425, end: 20150427
  57. PREDNISOLONE. [Suspect]
     Active Substance: PREDNISOLONE
     Dosage: 7.5 MG, QD
     Route: 065
     Dates: start: 20150527
  58. URBASON SOLUBILE FORTE [Concomitant]
     Dosage: 125 MG, QD
     Route: 065
     Dates: start: 20150424, end: 20150424
  59. URBASON [Concomitant]
     Active Substance: METHYLPREDNISOLONE
     Indication: RENAL TRANSPLANT
     Dosage: 500 MG, QD (IN EVENING)
     Route: 065
     Dates: start: 20150512, end: 20150514
  60. CERTICAN [Suspect]
     Active Substance: EVEROLIMUS
     Dosage: 12 MG, QD (6-0-6)
     Route: 048
     Dates: start: 20150428, end: 20150501
  61. CERTICAN [Suspect]
     Active Substance: EVEROLIMUS
     Dosage: 3.5 MG, QD (1.5-0-2)
     Route: 048
     Dates: start: 20150626
  62. TACROLIMUS. [Suspect]
     Active Substance: TACROLIMUS
     Dosage: 20 MG, QD (8-0-12)
     Route: 048
     Dates: start: 20150429, end: 20150429
  63. TACROLIMUS. [Suspect]
     Active Substance: TACROLIMUS
     Dosage: 24 MG, QD (12-0-12)
     Route: 048
     Dates: start: 20150430, end: 20150501
  64. TACROLIMUS. [Suspect]
     Active Substance: TACROLIMUS
     Dosage: 10 MG, QD (5-0-5)
     Route: 048
     Dates: start: 20150522, end: 20150528
  65. PREDNISOLONE. [Suspect]
     Active Substance: PREDNISOLONE
     Dosage: 40 MG, QD
     Route: 065
     Dates: start: 20150428, end: 20150501
  66. PREDNISOLONE. [Suspect]
     Active Substance: PREDNISOLONE
     Dosage: 10 MG, QD
     Route: 065
     Dates: start: 20150508, end: 20150526
  67. CITALOPRAM [Concomitant]
     Active Substance: CITALOPRAM HYDROBROMIDE
     Indication: PERSONALITY DISORDER
     Route: 065
     Dates: start: 20120928

REACTIONS (1)
  - Osteonecrosis [Not Recovered/Not Resolved]

NARRATIVE: CASE EVENT DATE: 201506
